FAERS Safety Report 21281326 (Version 2)
Quarter: 2022Q3

REPORT INFORMATION
  Report Type: Spontaneous
  Country: US (occurrence: US)
  Receive Date: 20220901
  Receipt Date: 20220901
  Transmission Date: 20221027
  Serious: No
  Sender: FDA-Public Use
  Company Number: US-ALLERGAN-2133003US

PATIENT
  Age: 29 Year
  Sex: Male
  Weight: 70.295 kg

DRUGS (3)
  1. SAPHRIS [Suspect]
     Active Substance: ASENAPINE MALEATE
     Indication: Schizophrenia
     Dosage: 10 MG, QPM
     Dates: start: 20210921
  2. SAPHRIS [Suspect]
     Active Substance: ASENAPINE MALEATE
     Dosage: 10 MG
     Dates: start: 202109, end: 20210920
  3. SAPHRIS [Suspect]
     Active Substance: ASENAPINE MALEATE
     Indication: Schizophrenia
     Dosage: ACTUAL: (2)X2.5 MG
     Dates: start: 20210921

REACTIONS (1)
  - Feeling abnormal [Unknown]

NARRATIVE: CASE EVENT DATE: 20210921
